FAERS Safety Report 4469086-2 (Version None)
Quarter: 2004Q4

REPORT INFORMATION
  Report Type: 
  Country: None (occurrence: None)
  Receive Date: 20041006
  Receipt Date: 20041006
  Transmission Date: 20050328
  Serious: Yes (Hospitalization)
  Sender: FDA-Public Use
  Company Number: None

PATIENT
  Age: 51 Year
  Weight: 117.9352 kg

DRUGS (1)
  1. VIOXX [Suspect]
     Indication: PLANTAR FASCIITIS
     Dosage: 25MG DAILY ORAL
     Route: 048
     Dates: start: 20010805, end: 20040904

REACTIONS (2)
  - DEEP VEIN THROMBOSIS [None]
  - HYPERTENSION [None]
